FAERS Safety Report 8374366-4 (Version None)
Quarter: 2012Q2

REPORT INFORMATION
  Report Type: 
  Country: None (occurrence: None)
  Receive Date: 20120521
  Receipt Date: 20120515
  Transmission Date: 20120825
  Serious: Yes (Other)
  Sender: FDA-Public Use
  Company Number: US-BAYER-2012-023042

PATIENT
  Age: 33 Year
  Sex: Female
  Weight: 80.272 kg

DRUGS (8)
  1. PHENAZOPYRIDINE HCL TAB [Concomitant]
  2. TRAMADOL HYDROCHLORIDE [Concomitant]
  3. OXYCODONE HCL AND ACETAMINOPHEN [Concomitant]
  4. YASMIN [Suspect]
     Indication: CONTRACEPTION
     Dosage: UNK
     Route: 048
     Dates: start: 20080121, end: 20080901
  5. BUPROPION HCL [Concomitant]
  6. DROSPIRENONE AND ETHINYL ESTRADIOL [Suspect]
     Indication: CONTRACEPTION
     Dosage: UNK
     Route: 048
     Dates: start: 20080901, end: 20100601
  7. CIPROFLOXACIN [Concomitant]
  8. IBUPROFEN [Concomitant]

REACTIONS (3)
  - PULMONARY EMBOLISM [None]
  - CHEST PAIN [None]
  - DYSPNOEA [None]
